FAERS Safety Report 9509422 (Version 2)
Quarter: 2013Q3

REPORT INFORMATION
  Report Type: Spontaneous
  Country: US (occurrence: US)
  Receive Date: 20130909
  Receipt Date: 20130909
  Transmission Date: 20140515
  Serious: No
  Sender: FDA-Public Use
  Company Number: US-BRISTOL-MYERS SQUIBB COMPANY-17308776

PATIENT
  Age: 11 Year
  Sex: Female

DRUGS (3)
  1. ABILIFY [Suspect]
     Indication: AUTISM SPECTRUM DISORDER
     Dosage: 29MA12-3JAN13.?29MAR12-PRESENT.
     Route: 048
     Dates: start: 20120329
  2. ABILIFY [Suspect]
     Indication: ABNORMAL BEHAVIOUR
     Dosage: 29MA12-3JAN13.?29MAR12-PRESENT.
     Route: 048
     Dates: start: 20120329
  3. LEXAPRO [Concomitant]
     Route: 048

REACTIONS (3)
  - Weight increased [Recovered/Resolved]
  - Palpitations [Recovered/Resolved]
  - Joint swelling [Not Recovered/Not Resolved]
